FAERS Safety Report 12581523 (Version 2)
Quarter: 2016Q3

REPORT INFORMATION
  Report Type: Spontaneous
  Country: IT (occurrence: IT)
  Receive Date: 20160721
  Receipt Date: 20160725
  Transmission Date: 20161109
  Serious: Yes (Death)
  Sender: FDA-Public Use
  Company Number: PHHY2016IT097347

PATIENT
  Age: 64 Year
  Sex: Male

DRUGS (4)
  1. AMPHOTERICINE B [Suspect]
     Active Substance: AMPHOTERICIN B
     Indication: ACUTE RESPIRATORY FAILURE
     Route: 065
  2. LINEZOLID. [Suspect]
     Active Substance: LINEZOLID
     Indication: ACUTE RESPIRATORY FAILURE
     Dosage: 1200 MG, QD
     Route: 042
  3. METHYLPREDNISOLONE. [Suspect]
     Active Substance: METHYLPREDNISOLONE
     Indication: TRANSPLANT REJECTION
     Route: 065
  4. MEROPENEM. [Suspect]
     Active Substance: MEROPENEM
     Indication: ACUTE RESPIRATORY FAILURE
     Route: 065

REACTIONS (5)
  - Multiple organ dysfunction syndrome [Fatal]
  - Lactic acidosis [Fatal]
  - Shock [Fatal]
  - Respiratory failure [Fatal]
  - Acute kidney injury [Fatal]
